FAERS Safety Report 12077755 (Version 2)
Quarter: 2016Q2

REPORT INFORMATION
  Report Type: Spontaneous
  Country: IT (occurrence: IT)
  Receive Date: 20160215
  Receipt Date: 20160607
  Transmission Date: 20160815
  Serious: Yes (Hospitalization, Other)
  Sender: FDA-Public Use
  Company Number: PHHY2016IT018292

PATIENT
  Age: 84 Year
  Sex: Male

DRUGS (1)
  1. DICLOFENAC [Suspect]
     Active Substance: DICLOFENAC
     Indication: FLANK PAIN
     Dosage: 1 DF, UNK
     Route: 030
     Dates: start: 20160201, end: 20160206

REACTIONS (4)
  - Oliguria [Recovered/Resolved]
  - Renal failure [Unknown]
  - Enteritis [Unknown]
  - Acute kidney injury [Recovered/Resolved]

NARRATIVE: CASE EVENT DATE: 20160206
